FAERS Safety Report 23349990 (Version 1)
Quarter: 2023Q4

REPORT INFORMATION
  Report Type: Spontaneous
  Country: US (occurrence: US)
  Receive Date: 20231229
  Receipt Date: 20231229
  Transmission Date: 20240108
  Serious: No
  Sender: FDA-Public Use
  Company Number: US-ASTELLAS-2023US026160

PATIENT
  Sex: Male

DRUGS (2)
  1. ENFORTUMAB VEDOTIN [Suspect]
     Active Substance: ENFORTUMAB VEDOTIN
     Indication: Bladder cancer
     Dosage: UNK UNK, UNKNOWN FREQ.
     Route: 065
  2. ENFORTUMAB VEDOTIN [Suspect]
     Active Substance: ENFORTUMAB VEDOTIN
     Dosage: 0.75 MG/KG, UNKNOWN FREQ. (DOSING WAS REDUCED)
     Route: 065

REACTIONS (2)
  - Blood creatinine increased [Not Recovered/Not Resolved]
  - Condition aggravated [Not Recovered/Not Resolved]
